FAERS Safety Report 4941371-7 (Version None)
Quarter: 2006Q1

REPORT INFORMATION
  Report Type: 
  Country: None (occurrence: None)
  Receive Date: 20060310
  Receipt Date: 20060303
  Transmission Date: 20060701
  Serious: Yes (Other)
  Sender: FDA-Public Use
  Company Number: CHPA2006US02440

PATIENT
  Age: 34 Year
  Sex: Male
  Weight: 72.6 kg

DRUGS (1)
  1. EXCEDRIN (MIGRAINE) [Suspect]
     Indication: HEADACHE
     Dosage: 1 DF TID ORAL
     Route: 048

REACTIONS (2)
  - DRUG ABUSER [None]
  - DRUG DEPENDENCE [None]
